FAERS Safety Report 6380900-6 (Version None)
Quarter: 2009Q3

REPORT INFORMATION
  Report Type: 
  Country: None (occurrence: None)
  Receive Date: 20090929
  Receipt Date: 20090918
  Transmission Date: 20100115
  Serious: Yes (Hospitalization)
  Sender: FDA-Public Use
  Company Number: B0591544A

PATIENT
  Sex: Female

DRUGS (9)
  1. VALTREX [Suspect]
     Indication: HERPES ZOSTER
     Dosage: 500MG THREE TIMES PER WEEK
     Route: 048
     Dates: start: 20090815, end: 20090901
  2. ALLOPURINOL [Concomitant]
     Dosage: 100MG PER DAY
     Route: 048
     Dates: end: 20090831
  3. ALLOPURINOL [Concomitant]
     Dosage: 100MG PER DAY
     Route: 048
     Dates: start: 20090903
  4. METHYCOBAL [Concomitant]
     Dosage: 1500MG PER DAY
     Route: 048
     Dates: end: 20090831
  5. METHYCOBAL [Concomitant]
     Dosage: 1500MG PER DAY
     Route: 048
     Dates: start: 20090903
  6. BERAPROST SODIUM [Concomitant]
     Dosage: 40MCG PER DAY
     Route: 048
     Dates: end: 20090831
  7. BERAPROST [Concomitant]
     Dosage: 40MCG PER DAY
     Route: 048
     Dates: start: 20090903
  8. MYSLEE [Concomitant]
     Dosage: 10MG PER DAY
     Route: 048
     Dates: end: 20090831
  9. MYSLEE [Concomitant]
     Dosage: 10MG PER DAY
     Route: 048
     Dates: start: 20090903

REACTIONS (8)
  - ALTERED STATE OF CONSCIOUSNESS [None]
  - DISORIENTATION [None]
  - DIZZINESS [None]
  - DYSARTHRIA [None]
  - FEELING ABNORMAL [None]
  - GAIT DISTURBANCE [None]
  - HYPOPHAGIA [None]
  - TOXIC ENCEPHALOPATHY [None]
